FAERS Safety Report 23092528 (Version 2)
Quarter: 2023Q4

REPORT INFORMATION
  Report Type: Spontaneous
  Country: CN (occurrence: CN)
  Receive Date: 20231021
  Receipt Date: 20231104
  Transmission Date: 20240109
  Serious: Yes (Hospitalization, Other)
  Sender: FDA-Public Use
  Company Number: CN-MACLEODS PHARMACEUTICALS US LTD-MAC2023043898

PATIENT

DRUGS (8)
  1. QUETIAPINE [Suspect]
     Active Substance: QUETIAPINE
     Indication: Hallucination, auditory
     Dosage: 300 MILLIGRAM
     Route: 065
     Dates: start: 2017, end: 20201225
  2. QUETIAPINE [Suspect]
     Active Substance: QUETIAPINE
     Indication: Abnormal behaviour
     Dosage: 400 MILLIGRAM
     Route: 065
     Dates: start: 20201225, end: 20210116
  3. QUETIAPINE [Suspect]
     Active Substance: QUETIAPINE
     Dosage: 400 MILLIGRAM
     Route: 065
     Dates: start: 20210104
  4. QUETIAPINE [Suspect]
     Active Substance: QUETIAPINE
     Dosage: 300 MILLIGRAM, QD
     Route: 065
     Dates: start: 20210116, end: 20210118
  5. QUETIAPINE [Suspect]
     Active Substance: QUETIAPINE
     Dosage: 300 MILLIGRAM
     Route: 065
     Dates: start: 20210118
  6. QUETIAPINE [Suspect]
     Active Substance: QUETIAPINE
     Dosage: 100 MILLIGRAM, QD
     Route: 065
     Dates: start: 20210118, end: 20210125
  7. ZIPRASIDONE [Suspect]
     Active Substance: ZIPRASIDONE
     Indication: Hallucination, auditory
     Dosage: 60 MILLIGRAM, QD
     Route: 065
     Dates: start: 2017
  8. ZIPRASIDONE [Suspect]
     Active Substance: ZIPRASIDONE
     Indication: Abnormal behaviour

REACTIONS (5)
  - Extrapyramidal disorder [Recovered/Resolved]
  - Tardive dyskinesia [Recovered/Resolved]
  - Arthropathy [Unknown]
  - Dehydration [Unknown]
  - Fatigue [Unknown]
